FAERS Safety Report 22140487 (Version 1)
Quarter: 2023Q1

REPORT INFORMATION
  Report Type: Spontaneous
  Country: US (occurrence: None)
  Receive Date: 20230324
  Receipt Date: 20230324
  Transmission Date: 20230418
  Serious: Yes (Death)
  Sender: FDA-Public Use
  Company Number: None

PATIENT
  Age: 67 Year
  Sex: Male

DRUGS (14)
  1. EDURANT [Suspect]
     Active Substance: RILPIVIRINE HYDROCHLORIDE
     Indication: HIV infection
     Dosage: FREQUENCY : DAILY;?
     Route: 048
     Dates: start: 20191129, end: 20230313
  2. PREZCOBIX [Suspect]
     Active Substance: COBICISTAT\DARUNAVIR ETHANOLATE
     Indication: HIV infection
     Dosage: FREQUENCY : DAILY;?
     Route: 048
     Dates: start: 20191129, end: 20230313
  3. Tivicay 50mg tablets [Concomitant]
  4. Aspirin 81mg tablets [Concomitant]
  5. ATORVASTATIN CALCIUM [Concomitant]
     Active Substance: ATORVASTATIN CALCIUM
  6. Calcium 600mg w/D Tablets [Concomitant]
  7. Clopidogrel 75mg tablets [Concomitant]
  8. Ferrous sulfate 325mg tablets [Concomitant]
  9. Folic acid 1 mg tablets [Concomitant]
  10. Gabapentin 800mg tablets [Concomitant]
  11. Cyanocobalamin 1000mcg injection [Concomitant]
  12. DULOXETINE [Concomitant]
     Active Substance: DULOXETINE
  13. LISINOPRIL [Concomitant]
     Active Substance: LISINOPRIL
  14. FUROSEMIDE [Concomitant]
     Active Substance: FUROSEMIDE

REACTIONS (4)
  - Infection [None]
  - Cardiac failure [None]
  - Foot operation [None]
  - Amputation [None]

NARRATIVE: CASE EVENT DATE: 20230313
